FAERS Safety Report 11703866 (Version 1)
Quarter: 2015Q4

REPORT INFORMATION
  Report Type: Spontaneous
  Country: US (occurrence: US)
  Receive Date: 20151106
  Receipt Date: 20151106
  Transmission Date: 20160304
  Serious: No
  Sender: FDA-Public Use
  Company Number: US-JUBILANT GENERICS LIMITED-1043838

PATIENT
  Sex: Female
  Weight: 141 kg

DRUGS (3)
  1. SYNTHROID [Concomitant]
     Active Substance: LEVOTHYROXINE SODIUM
  2. PANTOPRAZOLE [Suspect]
     Active Substance: PANTOPRAZOLE SODIUM
  3. CYTOMEL [Concomitant]
     Active Substance: LIOTHYRONINE SODIUM

REACTIONS (5)
  - Chest pain [Not Recovered/Not Resolved]
  - Drug ineffective [Not Recovered/Not Resolved]
  - Malaise [Unknown]
  - Dysphagia [Recovered/Resolved]
  - Dyspepsia [Recovered/Resolved]

NARRATIVE: CASE EVENT DATE: 20140923
